FAERS Safety Report 10625128 (Version 1)
Quarter: 2014Q4

REPORT INFORMATION
  Report Type: Spontaneous
  Country: US (occurrence: None)
  Receive Date: 20141202
  Receipt Date: 20141202
  Transmission Date: 20150529
  Serious: Yes (Other)
  Sender: FDA-Public Use
  Company Number: US-017832

PATIENT
  Age: 54 Year
  Sex: Female
  Weight: 83.92 kg

DRUGS (5)
  1. DAILY VITAMINS [Concomitant]
  2. SULFASALAZINE. [Concomitant]
     Active Substance: SULFASALAZINE
  3. SIMVASTATIN. [Concomitant]
     Active Substance: SIMVASTATIN
  4. PICOLAX [Suspect]
     Active Substance: CITRIC ACID MONOHYDRATE\MAGNESIUM OXIDE\SODIUM PICOSULFATE
     Indication: BOWEL PREPARATION
     Dates: start: 20141102, end: 20141102
  5. ADVAIR HFA [Suspect]
     Active Substance: FLUTICASONE PROPIONATE\SALMETEROL XINAFOATE

REACTIONS (1)
  - Ventricular tachycardia [None]

NARRATIVE: CASE EVENT DATE: 20141102
